FAERS Safety Report 6510039-8 (Version None)
Quarter: 2009Q4

REPORT INFORMATION
  Report Type: 
  Country: None (occurrence: None)
  Receive Date: 20091222
  Receipt Date: 20091102
  Transmission Date: 20100525
  Serious: No
  Sender: FDA-Public Use
  Company Number: US-ABBOTT-09P-163-0606786-00

PATIENT
  Sex: Female
  Weight: 80.812 kg

DRUGS (3)
  1. OMNICEF [Suspect]
     Indication: EAR INFECTION
     Dates: start: 20091030, end: 20091102
  2. OMNICEF [Suspect]
     Dates: start: 20091103
  3. ADDERALL 10 [Concomitant]
     Indication: ATTENTION DEFICIT/HYPERACTIVITY DISORDER

REACTIONS (2)
  - DRUG DOSE OMISSION [None]
  - MICTURITION URGENCY [None]
